FAERS Safety Report 5343962-0 (Version None)
Quarter: 2007Q2

REPORT INFORMATION
  Report Type: 
  Country: None (occurrence: None)
  Receive Date: 20070416
  Receipt Date: 20070116
  Transmission Date: 20071010
  Serious: No
  Sender: FDA-Public Use
  Company Number: 2007SP000185

PATIENT
  Age: 78 Year
  Sex: Male
  Weight: 79.3795 kg

DRUGS (14)
  1. LUNESTA [Suspect]
     Indication: INSOMNIA
     Dosage: 3 MG;ORAL
     Route: 048
     Dates: start: 20061101
  2. LEXAPRO [Suspect]
     Dosage: ORAL
     Route: 048
     Dates: start: 20061101
  3. LORAZEPAM [Suspect]
     Dosage: ORAL
     Route: 048
     Dates: start: 20061101
  4. TAMSULOSIN HCL [Concomitant]
  5. SAW PALMETTO [Concomitant]
  6. COZAAR [Concomitant]
  7. AMLODIPINE [Concomitant]
  8. LOPRESSOR [Concomitant]
  9. DIGOXIN [Concomitant]
  10. XALATAN [Concomitant]
  11. SOLU-MEDROL [Concomitant]
  12. WARFARIN SODIUM [Concomitant]
  13. FISH OIL [Concomitant]
  14. ICAPS [Concomitant]

REACTIONS (3)
  - DIZZINESS [None]
  - GLAUCOMA [None]
  - HEADACHE [None]
